FAERS Safety Report 7307706-5 (Version None)
Quarter: 2011Q1

REPORT INFORMATION
  Report Type: 
  Country: None (occurrence: None)
  Receive Date: 20110223
  Receipt Date: 20110214
  Transmission Date: 20110831
  Serious: Yes (Hospitalization, Disabling)
  Sender: FDA-Public Use
  Company Number: US-BAXTER-2010BH029372

PATIENT
  Age: 54 Year
  Sex: Female
  Weight: 85 kg

DRUGS (12)
  1. WELLBUTRIN [Concomitant]
     Route: 048
     Dates: start: 20090515
  2. GAMMAGARD LIQUID [Suspect]
     Route: 042
     Dates: start: 20101004, end: 20101007
  3. GAMMAGARD LIQUID [Suspect]
     Indication: MULTIPLE SCLEROSIS
     Route: 042
     Dates: start: 20101108, end: 20101101
  4. GAMMAGARD LIQUID [Suspect]
     Indication: OFF LABEL USE
     Route: 042
     Dates: start: 20101108, end: 20101101
  5. GAMMAGARD LIQUID [Suspect]
     Route: 065
     Dates: start: 20040101
  6. GAMMAGARD LIQUID [Suspect]
     Route: 042
     Dates: start: 20101004, end: 20101007
  7. GAMMAGARD LIQUID [Suspect]
     Route: 065
     Dates: start: 20040101
  8. ZOLEDRONIC ACID [Concomitant]
     Indication: MULTIPLE SCLEROSIS
     Route: 042
     Dates: start: 20100326
  9. RITALIN [Concomitant]
     Indication: MULTIPLE SCLEROSIS
     Route: 048
     Dates: start: 20091124
  10. TYLENOL [Concomitant]
     Route: 048
  11. DIPHENHYDRAMINE HYDROCHLORIDE [Concomitant]
     Route: 048
  12. CELEBREX [Concomitant]
     Indication: PAIN
     Route: 048
     Dates: start: 20090515

REACTIONS (5)
  - HEADACHE [None]
  - VOMITING [None]
  - NAUSEA [None]
  - TREMOR [None]
  - PHOTOPHOBIA [None]
